FAERS Safety Report 7127093-5 (Version None)
Quarter: 2010Q4

REPORT INFORMATION
  Report Type: 
  Country: None (occurrence: None)
  Receive Date: 20101129
  Receipt Date: 20100203
  Transmission Date: 20110411
  Serious: No
  Sender: FDA-Public Use
  Company Number: US-PFIZER INC-2010016080

PATIENT
  Sex: Male
  Weight: 74.8 kg

DRUGS (3)
  1. VIAGRA [Suspect]
     Indication: ERECTILE DYSFUNCTION
     Dosage: 25 MG, AS NEEDED
     Route: 048
  2. LOTREL [Concomitant]
     Indication: HYPERTENSION
     Dosage: [AMLODIPINE 10 MG]/[BENAZEPRIL HYDROCHLORIDE 40 MG], UNK
  3. CRESTOR [Concomitant]
     Indication: PROPHYLAXIS
     Dosage: UNK
     Dates: start: 20091101

REACTIONS (1)
  - DRUG INEFFECTIVE [None]
